FAERS Safety Report 8950958 (Version 1)
Quarter: 2012Q4

REPORT INFORMATION
  Report Type: Spontaneous
  Country: US (occurrence: None)
  Receive Date: 20121130
  Receipt Date: 20121130
  Transmission Date: 20130627
  Serious: No
  Sender: FDA-Public Use
  Company Number: None

PATIENT

DRUGS (2)
  1. FENTANYL CITRATE, BUPIVACAINE HCL [Suspect]
     Dosage: Injectable  Epidural  2 mcg per mL of fent
     Route: 008
  2. FENTANYL CITRATE, BUPIVACAINE HCL [Suspect]
     Dosage: Injectable  Epidural  2 mcg per mL of fent
     Route: 008

REACTIONS (2)
  - Wrong drug administered [None]
  - Drug label confusion [None]
